FAERS Safety Report 5468554-4 (Version None)
Quarter: 2007Q3

REPORT INFORMATION
  Report Type: 
  Country: None (occurrence: None)
  Receive Date: 20070912
  Receipt Date: 20070907
  Transmission Date: 20080115
  Serious: Yes (Other)
  Sender: FDA-Public Use
  Company Number: GAM-072-07-SE

PATIENT
  Sex: Female

DRUGS (6)
  1. OCTAGAM 5% (INTRAVENOUS HUMAN IMMUNOGLOBULIN) BATCH #C642A843 BATCH #C [Suspect]
     Indication: GUILLAIN-BARRE SYNDROME
     Dosage: 700 ML I.V.
     Route: 042
     Dates: start: 20070726, end: 20070730
  2. OCTAGAM 5% (INTRAVENOUS HUMAN IMMUNOGLOBULIN) BATCH #C642A843 BATCH #C [Suspect]
  3. DALTEPARINNATRIUM (DALTEPARINNATRIUM) [Concomitant]
  4. KARBOMER (KARBOMER) [Concomitant]
  5. NYSTATIN [Concomitant]
  6. ACETAMINOPHEN [Concomitant]

REACTIONS (4)
  - BACTERIAL TEST POSITIVE [None]
  - CHILLS [None]
  - PYREXIA [None]
  - VOMITING [None]
